FAERS Safety Report 4867469-X (Version None)
Quarter: 2005Q4

REPORT INFORMATION
  Report Type: 
  Country: None (occurrence: None)
  Receive Date: 20051228
  Receipt Date: 20051213
  Transmission Date: 20060501
  Serious: Yes (Other)
  Sender: FDA-Public Use
  Company Number: CA-MERCK-0512CAN00087

PATIENT
  Age: 83 Year
  Sex: Female
  Weight: 71 kg

DRUGS (8)
  1. ZOCOR [Suspect]
     Indication: HYPERCHOLESTEROLAEMIA
     Route: 048
     Dates: start: 20051101
  2. ZOCOR [Suspect]
     Route: 048
     Dates: start: 19940714, end: 20051031
  3. METFORMIN [Concomitant]
     Indication: DIABETES MELLITUS NON-INSULIN-DEPENDENT
     Route: 065
     Dates: start: 20050406, end: 20051031
  4. METFORMIN [Concomitant]
     Route: 065
     Dates: start: 20051031
  5. FUROSEMIDE [Concomitant]
     Indication: OEDEMA PERIPHERAL
     Route: 065
     Dates: start: 20031217
  6. RAMIPRIL [Concomitant]
     Indication: HYPERTENSION
     Route: 065
     Dates: start: 20030702
  7. ACETAMINOPHEN AND CODEINE PHOSPHATE [Concomitant]
     Indication: OSTEOARTHRITIS
     Route: 065
     Dates: start: 20020213
  8. ASPIRIN [Concomitant]
     Indication: PROPHYLAXIS
     Route: 065
     Dates: start: 20051031

REACTIONS (3)
  - GRAVITATIONAL OEDEMA [None]
  - MYOCARDIAL INFARCTION [None]
  - SINUSITIS [None]
